FAERS Safety Report 8296502-0 (Version None)
Quarter: 2012Q2

REPORT INFORMATION
  Report Type: 
  Country: None (occurrence: None)
  Receive Date: 20120418
  Receipt Date: 20120416
  Transmission Date: 20120825
  Serious: No
  Sender: FDA-Public Use
  Company Number: US-PFIZER INC-2012094210

PATIENT
  Sex: Female

DRUGS (3)
  1. NEURONTIN [Suspect]
     Dosage: 600 MG, UNK
  2. NEURONTIN [Suspect]
     Indication: NEURALGIA
     Dosage: 600 MG, UNK
     Route: 048
  3. NEURONTIN [Suspect]
     Dosage: 300 MG, UNK
     Route: 048
     Dates: start: 20110101

REACTIONS (1)
  - PAIN IN EXTREMITY [None]
